FAERS Safety Report 5997895-7 (Version None)
Quarter: 2008Q4

REPORT INFORMATION
  Report Type: 
  Country: None (occurrence: None)
  Receive Date: 20081212
  Receipt Date: 20081125
  Transmission Date: 20090506
  Serious: No
  Sender: FDA-Public Use
  Company Number: US-ABBOTT-08P-163-0489840-00

PATIENT
  Sex: Male

DRUGS (1)
  1. HUMIRA [Suspect]
     Indication: RHEUMATOID ARTHRITIS
     Dates: start: 20081116

REACTIONS (6)
  - CHILLS [None]
  - FATIGUE [None]
  - LETHARGY [None]
  - NIGHT SWEATS [None]
  - PYREXIA [None]
  - VERTIGO [None]
